FAERS Safety Report 6208482-X (Version None)
Quarter: 2009Q2

REPORT INFORMATION
  Report Type: 
  Country: None (occurrence: None)
  Receive Date: 20090529
  Receipt Date: 20090519
  Transmission Date: 20091009
  Serious: Yes (Other)
  Sender: FDA-Public Use
  Company Number: US-PFIZER INC-2009216712

PATIENT
  Sex: Female
  Weight: 54.431 kg

DRUGS (7)
  1. LYRICA [Suspect]
     Indication: MYALGIA
     Dosage: 50 MG, 1X/DAY
     Dates: start: 20090512, end: 20090513
  2. LYRICA [Suspect]
     Indication: NEURALGIA
  3. DONNATAL [Concomitant]
     Dosage: UNK
  4. ULTRACET [Concomitant]
     Indication: PAIN
     Dosage: UNK
  5. VITAMINS [Concomitant]
     Dosage: UNK
  6. CALCIUM [Concomitant]
     Dosage: UNK
  7. TYLENOL [Concomitant]
     Dosage: UNK

REACTIONS (3)
  - DIZZINESS [None]
  - EYE SWELLING [None]
  - VISION BLURRED [None]
